FAERS Safety Report 21715528 (Version 1)
Quarter: 2022Q4

REPORT INFORMATION
  Report Type: Spontaneous
  Country: US (occurrence: None)
  Receive Date: 20221210
  Receipt Date: 20221210
  Transmission Date: 20230113
  Serious: Yes (Hospitalization, Disabling, Other)
  Sender: FDA-Public Use
  Company Number: None

PATIENT
  Age: 73 Year
  Sex: Female
  Weight: 67.5 kg

DRUGS (8)
  1. VENLAFAXINE [Suspect]
     Active Substance: VENLAFAXINE HYDROCHLORIDE
     Indication: Anxiety
     Dates: start: 20160227
  2. VENLAFAXINE [Concomitant]
     Active Substance: VENLAFAXINE HYDROCHLORIDE
  3. Pramapexole [Concomitant]
  4. c [Concomitant]
  5. D [Concomitant]
  6. e [Concomitant]
  7. VITAMINS [Concomitant]
     Active Substance: VITAMINS
  8. IRON [Concomitant]
     Active Substance: IRON

REACTIONS (7)
  - Adverse drug reaction [None]
  - Hallucination, visual [None]
  - Seizure [None]
  - Feeding disorder [None]
  - Insomnia [None]
  - Balance disorder [None]
  - Muscle twitching [None]

NARRATIVE: CASE EVENT DATE: 20210101
